FAERS Safety Report 18212632 (Version 1)
Quarter: 2020Q3

REPORT INFORMATION
  Report Type: Spontaneous
  Country: US (occurrence: US)
  Receive Date: 20200828
  Receipt Date: 20200828
  Transmission Date: 20201103
  Serious: Yes (Disabling)
  Sender: FDA-Public Use
  Company Number: None

PATIENT
  Age: 94 Year
  Sex: Female
  Weight: 68.49 kg

DRUGS (4)
  1. MEKTOVI [Concomitant]
     Active Substance: BINIMETINIB
     Dates: start: 20200521
  2. MEKTOVI [Suspect]
     Active Substance: BINIMETINIB
     Indication: MALIGNANT MELANOMA
     Dosage: 3 TABLETS
     Route: 048
     Dates: start: 20200521
  3. BRAFTOVI [Suspect]
     Active Substance: ENCORAFENIB
     Indication: MALIGNANT MELANOMA
     Route: 048
     Dates: start: 20200522
  4. BRAFTOVI [Concomitant]
     Active Substance: ENCORAFENIB
     Dates: start: 20200522

REACTIONS (2)
  - Gait inability [None]
  - Malaise [None]

NARRATIVE: CASE EVENT DATE: 20200728
